FAERS Safety Report 13762017 (Version 1)
Quarter: 2017Q3

REPORT INFORMATION
  Report Type: Spontaneous
  Country: US (occurrence: US)
  Receive Date: 20170717
  Receipt Date: 20170717
  Transmission Date: 20171127
  Serious: No
  Sender: FDA-Public Use
  Company Number: None

PATIENT
  Sex: Female

DRUGS (1)
  1. LEVOTHYROXINE  75MCG [Suspect]
     Active Substance: LEVOTHYROXINE
     Indication: GOITRE

REACTIONS (3)
  - Tachycardia [None]
  - Blood thyroid stimulating hormone abnormal [None]
  - Hyperhidrosis [None]

NARRATIVE: CASE EVENT DATE: 2014
